FAERS Safety Report 18066243 (Version 1)
Quarter: 2020Q3

REPORT INFORMATION
  Report Type: Spontaneous
  Country: US (occurrence: US)
  Receive Date: 20200724
  Receipt Date: 20200724
  Transmission Date: 20201103
  Serious: Yes (Death)
  Sender: FDA-Public Use
  Company Number: None

PATIENT
  Age: 81 Year
  Sex: Male
  Weight: 65.6 kg

DRUGS (1)
  1. REMDESIVIR. [Suspect]
     Active Substance: REMDESIVIR
     Dates: start: 20200620, end: 20200624

REACTIONS (3)
  - Respiratory arrest [None]
  - Pulse absent [None]
  - SARS-CoV-2 test positive [None]

NARRATIVE: CASE EVENT DATE: 20200718
